FAERS Safety Report 9794709 (Version 1)
Quarter: 2014Q1

REPORT INFORMATION
  Report Type: Spontaneous
  Country: US (occurrence: US)
  Receive Date: 20140102
  Receipt Date: 20140102
  Transmission Date: 20141002
  Serious: No
  Sender: FDA-Public Use
  Company Number: US-BAXTER-2013BAX050917

PATIENT
  Age: 52 Year
  Sex: Female
  Weight: 65 kg

DRUGS (2)
  1. GAMMAGARD LIQUID [Suspect]
     Indication: IMMUNODEFICIENCY COMMON VARIABLE
     Dosage: 90 MILLILITERS PER HOUR
     Route: 042
     Dates: start: 2012
  2. PROMETHAZINE [Suspect]
     Indication: NAUSEA
     Dosage: 90 MILLILITERS PER HOUR, ONCE
     Route: 042
     Dates: start: 20131216, end: 20131216

REACTIONS (2)
  - Nausea [Recovered/Resolved]
  - Wrong technique in drug usage process [Unknown]
